FAERS Safety Report 8697335 (Version 2)
Quarter: 2013Q4

REPORT INFORMATION
  Report Type: Spontaneous
  Country: US (occurrence: US)
  Receive Date: 20120801
  Receipt Date: 20131101
  Transmission Date: 20140711
  Serious: No
  Sender: FDA-Public Use
  Company Number: US-009507513-1207USA007060

PATIENT
  Sex: Female

DRUGS (1)
  1. IMPLANON [Suspect]
     Dosage: 1 UNK, UNK
     Route: 058

REACTIONS (4)
  - Device dislocation [Unknown]
  - Complication of device insertion [Unknown]
  - Medical device complication [Unknown]
  - No adverse event [Unknown]
